FAERS Safety Report 8875531 (Version 2)
Quarter: 2012Q4

REPORT INFORMATION
  Report Type: 
  Country: US (occurrence: US)
  Receive Date: 20121029
  Receipt Date: 20121213
  Transmission Date: 20130627
  Serious: No
  Sender: FDA-Public Use
  Company Number: US-VERTEX PHARMACEUTICAL INC.-AE-2012-005872

PATIENT
  Age: 40 Year
  Sex: Male
  Weight: 123 kg

DRUGS (6)
  1. INCIVEK [Suspect]
     Indication: HEPATITIS C
     Dosage: 750 mg, tid
     Route: 048
     Dates: start: 20120407
  2. PEGASYS [Suspect]
     Indication: HEPATITIS C
     Dosage: 180 ?g, qw
     Route: 058
     Dates: start: 20120407, end: 20121023
  3. RIBAVIRIN [Suspect]
     Indication: HEPATITIS C
     Dosage: 600 mg in AM, 400 mg inPM
     Route: 048
     Dates: start: 20120407, end: 20121023
  4. NADOLOL [Concomitant]
     Dosage: 10 mg, qd
     Route: 048
  5. LISINOPRIL [Concomitant]
     Dosage: 40 mg, qd
     Route: 048
  6. VITAMIN D /00107901/ [Concomitant]
     Dosage: 5000 ut, qw
     Route: 048

REACTIONS (3)
  - Influenza like illness [Not Recovered/Not Resolved]
  - Pain [Unknown]
  - Drug ineffective [Unknown]
